FAERS Safety Report 12231878 (Version 2)
Quarter: 2016Q2

REPORT INFORMATION
  Report Type: Spontaneous
  Country: JP (occurrence: JP)
  Receive Date: 20160401
  Receipt Date: 20160414
  Transmission Date: 20160815
  Serious: Yes (Other)
  Sender: FDA-Public Use
  Company Number: JP-BAYER-2016-057193

PATIENT
  Age: 87 Year
  Sex: Male

DRUGS (1)
  1. BAYASPIRIN [Suspect]
     Active Substance: ASPIRIN
     Indication: ATRIAL FIBRILLATION
     Route: 048

REACTIONS (5)
  - Haemorrhagic anaemia [Recovered/Resolved]
  - Wound infection [Recovered/Resolved]
  - Wound haemorrhage [Recovered/Resolved]
  - Wound dehiscence [Recovered/Resolved]
  - Wound necrosis [Recovered/Resolved]
